FAERS Safety Report 8178783-7 (Version None)
Quarter: 2012Q1

REPORT INFORMATION
  Report Type: 
  Country: None (occurrence: None)
  Receive Date: 20120301
  Receipt Date: 20120221
  Transmission Date: 20120608
  Serious: Yes (Hospitalization, Other)
  Sender: FDA-Public Use
  Company Number: US-ASTRAZENECA-2012SE07332

PATIENT
  Age: 84 Year
  Sex: Female

DRUGS (2)
  1. LIPITOR [Concomitant]
  2. CRESTOR [Suspect]
     Indication: PAIN IN EXTREMITY
     Route: 048
     Dates: start: 20111101

REACTIONS (1)
  - ARTERIAL OCCLUSIVE DISEASE [None]
